FAERS Safety Report 9131865 (Version 1)
Quarter: 2013Q1

REPORT INFORMATION
  Report Type: Spontaneous
  Country: US (occurrence: US)
  Receive Date: 20130301
  Receipt Date: 20130301
  Transmission Date: 20140127
  Serious: No
  Sender: FDA-Public Use
  Company Number: US-009507513-1303USA000216

PATIENT
  Age: 33 Year
  Sex: Male

DRUGS (3)
  1. CLARITIN [Suspect]
     Indication: NASOPHARYNGITIS
     Dosage: 10 MG, UNKNOWN
     Route: 048
     Dates: start: 20130209, end: 20130210
  2. CLARITIN [Suspect]
     Indication: RHINORRHOEA
  3. CLARITIN [Suspect]
     Indication: SNEEZING

REACTIONS (2)
  - Overdose [Unknown]
  - Drug effect decreased [Unknown]
